FAERS Safety Report 15302327 (Version 1)
Quarter: 2018Q3

REPORT INFORMATION
  Report Type: Spontaneous
  Country: NO (occurrence: NO)
  Receive Date: 20180821
  Receipt Date: 20180821
  Transmission Date: 20181010
  Serious: Yes (Hospitalization)
  Sender: FDA-Public Use
  Company Number: NO-TEVA-2018-NO-945427

PATIENT
  Age: 46 Year
  Sex: Female

DRUGS (5)
  1. NEXIUM [Concomitant]
     Active Substance: ESOMEPRAZOLE MAGNESIUM
     Dosage: 40 MILLIGRAM DAILY;
     Route: 048
     Dates: start: 2017
  2. PREDNISOLON [Suspect]
     Active Substance: PREDNISOLONE
     Indication: COLITIS ULCERATIVE
     Dosage: 40 MG IN THE BEGINNING AND GRADUALLY TAPERING
     Route: 048
     Dates: start: 201605, end: 201608
  3. REMSIMA [Suspect]
     Active Substance: INFLIXIMAB
     Indication: COLITIS ULCERATIVE
     Route: 042
     Dates: start: 201606, end: 201708
  4. IMUREL [Suspect]
     Active Substance: AZATHIOPRINE SODIUM
     Indication: COLITIS ULCERATIVE
     Dosage: 100 MILLIGRAM DAILY;
     Route: 048
     Dates: start: 201610, end: 201708
  5. PENTASA [Concomitant]
     Active Substance: MESALAMINE
     Indication: COLITIS ULCERATIVE
     Dosage: 2 GRAM DAILY;
     Route: 048
     Dates: start: 2012

REACTIONS (1)
  - Visceral leishmaniasis [Recovered/Resolved with Sequelae]

NARRATIVE: CASE EVENT DATE: 201804
